FAERS Safety Report 10371759 (Version 1)
Quarter: 2014Q1

REPORT INFORMATION
  Report Type: Spontaneous
  Country: US (occurrence: None)
  Receive Date: 20140306
  Receipt Date: 20140306
  Transmission Date: 20141002
  Serious: Yes (Other)
  Sender: FDA-Public Use
  Company Number: 163-21880-13083855

PATIENT
  Age: 49 Year
  Sex: Male

DRUGS (6)
  1. REVLIMID (LENALIDOMIDE) (10 MILLIGRAM, CAPSULES) [Suspect]
     Indication: MYELODYSPLASTIC SYNDROME
     Route: 048
     Dates: start: 201307
  2. PAXIL (PAROXETINE HYDROCHLORIDE) (UNKNOWN) [Concomitant]
  3. XANAX (ALPRAZOLAM) (TABLETS) [Concomitant]
  4. VIAGRA (SILDENAFIL CITRATE) (TABLETS) [Concomitant]
  5. ASPIRIN (ACETYLSALICYLIC ACID) (CHEWABLE TABLET) [Concomitant]
  6. B-COMPLEX PLUS VITAMIN C (B COMPLEX WITH C) (CAPSULES) [Concomitant]

REACTIONS (3)
  - Rash generalised [None]
  - White blood cell count decreased [None]
  - Neutrophil count decreased [None]
